FAERS Safety Report 4952869-X (Version None)
Quarter: 2006Q1

REPORT INFORMATION
  Report Type: 
  Country: None (occurrence: None)
  Receive Date: 20060324
  Receipt Date: 20060315
  Transmission Date: 20060701
  Serious: Yes (Other)
  Sender: FDA-Public Use
  Company Number: NL-JNJFOC-20060303879

PATIENT
  Sex: Female
  Weight: 65 kg

DRUGS (6)
  1. CONCERTA [Suspect]
     Route: 065
  2. ZOPICLON [Concomitant]
  3. RITALIN [Concomitant]
  4. TALVAST [Concomitant]
  5. TURBO INHALER [Concomitant]
  6. OINTMENT [Concomitant]

REACTIONS (1)
  - SUICIDAL IDEATION [None]
